FAERS Safety Report 14985792 (Version 1)
Quarter: 2018Q2

REPORT INFORMATION
  Report Type: Spontaneous
  Country: US (occurrence: US)
  Receive Date: 20180516
  Receipt Date: 20180516
  Transmission Date: 20180711
  Serious: Yes (Hospitalization)
  Sender: FDA-Public Use
  Company Number: None

PATIENT
  Sex: Female
  Weight: 78.47 kg

DRUGS (15)
  1. PANTOPRAZOLE [Concomitant]
     Active Substance: PANTOPRAZOLE
  2. DAPSONE. [Concomitant]
     Active Substance: DAPSONE
  3. DOCUSATE [Concomitant]
     Active Substance: DOCUSATE
  4. PROCHLORPERAZINE. [Concomitant]
     Active Substance: PROCHLORPERAZINE
  5. LEVOTHYROXINE. [Concomitant]
     Active Substance: LEVOTHYROXINE
  6. CYTARABINE. [Suspect]
     Active Substance: CYTARABINE
     Dates: end: 20180430
  7. METHOTREXATE. [Suspect]
     Active Substance: METHOTREXATE
     Dates: end: 20180426
  8. CARVEDILOL. [Concomitant]
     Active Substance: CARVEDILOL
  9. GUAIFENESIN-DEXTROMETHORPHAN [Concomitant]
  10. ONDANSETRON [Concomitant]
     Active Substance: ONDANSETRON
  11. POLYETHYLENE GLUCOL PACK [Concomitant]
  12. ONCASPAR [Suspect]
     Active Substance: PEGASPARGASE
     Dates: end: 20180430
  13. ACYCLOVIR. [Concomitant]
     Active Substance: ACYCLOVIR
  14. HYDROCHLOROTHIAZIDE. [Concomitant]
     Active Substance: HYDROCHLOROTHIAZIDE
  15. ETOPOSIDE (VP-16) [Suspect]
     Active Substance: ETOPOSIDE
     Dates: end: 20180430

REACTIONS (4)
  - Hypotension [None]
  - Hypophagia [None]
  - Nausea [None]
  - Vomiting [None]

NARRATIVE: CASE EVENT DATE: 20180510
